FAERS Safety Report 8853789 (Version 1)
Quarter: 2012Q4

REPORT INFORMATION
  Report Type: 
  Country: US (occurrence: US)
  Receive Date: 20121022
  Receipt Date: 20121022
  Transmission Date: 20130627
  Serious: Yes (Other)
  Sender: FDA-Public Use
  Company Number: CHPA2012US021683

PATIENT
  Age: 74 Year
  Sex: Male

DRUGS (5)
  1. MAALOX ADV MAXIMUM STRENGTH ANTACID/ANTIGAS [Suspect]
     Indication: NAUSEA
     Dosage: A SWIG, QD
     Route: 048
  2. MAALOX ADV MAXIMUM STRENGTH ANTACID/ANTIGAS [Suspect]
     Dosage: A SWIG, PRN
     Route: 048
     Dates: start: 1999
  3. BYSTOLIC [Concomitant]
     Indication: CARDIAC DISORDER
     Dosage: Unk, Unk
  4. SIMVASTATIN [Concomitant]
     Indication: CARDIAC DISORDER
     Dosage: Unk, Unk
  5. FISH OIL [Concomitant]
     Dosage: Unk, Unk

REACTIONS (4)
  - Crohn^s disease [Not Recovered/Not Resolved]
  - Blood triglycerides increased [Not Recovered/Not Resolved]
  - Off label use [Unknown]
  - Wrong technique in drug usage process [Unknown]
